FAERS Safety Report 7760551-9 (Version None)
Quarter: 2011Q3

REPORT INFORMATION
  Report Type: 
  Country: None (occurrence: None)
  Receive Date: 20110919
  Receipt Date: 20110912
  Transmission Date: 20111222
  Serious: Yes (Other)
  Sender: FDA-Public Use
  Company Number: US-BAXTER-2011BH029292

PATIENT
  Age: 70 Year
  Sex: Male

DRUGS (1)
  1. LORAZEPAM [Suspect]
     Indication: NAUSEA
     Route: 042

REACTIONS (3)
  - OVERDOSE [None]
  - MEDICATION ERROR [None]
  - UNRESPONSIVE TO STIMULI [None]
